FAERS Safety Report 5880095-9 (Version None)
Quarter: 2008Q3

REPORT INFORMATION
  Report Type: 
  Country: None (occurrence: None)
  Receive Date: 20080912
  Receipt Date: 20080902
  Transmission Date: 20090109
  Serious: Yes (Hospitalization, Other)
  Sender: FDA-Public Use
  Company Number: JP-PFIZER INC-2008070786

PATIENT
  Age: 41 Year
  Sex: Female

DRUGS (1)
  1. SULPERAZON [Suspect]
     Indication: FIBRINOLYSIS
     Route: 042

REACTIONS (2)
  - HYPERSENSITIVITY [None]
  - PULMONARY FIBROSIS [None]
